FAERS Safety Report 14742707 (Version 1)
Quarter: 2018Q2

REPORT INFORMATION
  Report Type: Spontaneous
  Country: CA (occurrence: CA)
  Receive Date: 20180410
  Receipt Date: 20180410
  Transmission Date: 20180711
  Serious: Yes (Other)
  Sender: FDA-Public Use
  Company Number: CA-PFIZER INC-2017060617

PATIENT
  Age: 78 Year
  Sex: Female

DRUGS (2)
  1. SULFASALAZINE. [Suspect]
     Active Substance: SULFASALAZINE
     Indication: RHEUMATOID ARTHRITIS
     Dosage: 1.5 G, 2X/DAY (500 MG, GIVEN 3 PILLS IN MORNING AND 3 AT BEDTIME [6 TABLETS DAILY
     Route: 048
  2. CALCIUM [Concomitant]
     Active Substance: CALCIUM
     Dosage: 500 MG, 1X/DAY
     Route: 048

REACTIONS (3)
  - Drug ineffective [Unknown]
  - Lung carcinoma cell type unspecified stage II [Not Recovered/Not Resolved]
  - Lung disorder [Unknown]

NARRATIVE: CASE EVENT DATE: 2017
